APPROVED DRUG PRODUCT: XENICAL
Active Ingredient: ORLISTAT
Strength: 120MG
Dosage Form/Route: CAPSULE;ORAL
Application: N020766 | Product #001
Applicant: CHEPLAPHARM ARZNEIMITTEL GMBH
Approved: Apr 23, 1999 | RLD: Yes | RS: Yes | Type: RX